FAERS Safety Report 10581978 (Version 6)
Quarter: 2015Q2

REPORT INFORMATION
  Report Type: Spontaneous
  Country: US (occurrence: US)
  Receive Date: 20141113
  Receipt Date: 20150501
  Transmission Date: 20150821
  Serious: Yes (Hospitalization, Disabling, Other)
  Sender: FDA-Public Use
  Company Number: US-009507513-1111USA02614

PATIENT
  Sex: Female
  Weight: 99.32 kg

DRUGS (2)
  1. FOSAMAX [Suspect]
     Active Substance: ALENDRONATE SODIUM
     Dosage: 70 MG, QW
     Route: 048
     Dates: start: 2002, end: 20100305
  2. FOSAMAX [Suspect]
     Active Substance: ALENDRONATE SODIUM
     Indication: OSTEOPENIA
     Dosage: 10 MG, QD
     Route: 048
     Dates: start: 20000112, end: 2002

REACTIONS (28)
  - Open reduction of fracture [Unknown]
  - Haemorrhagic anaemia [Unknown]
  - Metabolic syndrome [Unknown]
  - Depression [Unknown]
  - Colon cancer stage 0 [Unknown]
  - Ankle fracture [Unknown]
  - Foot fracture [Recovered/Resolved]
  - Hypertension [Unknown]
  - Essential hypertension [Unknown]
  - Anxiety [Unknown]
  - Osteoarthritis [Unknown]
  - Weight loss poor [Unknown]
  - Drug ineffective [Unknown]
  - Femur fracture [Recovered/Resolved]
  - Fall [Recovered/Resolved]
  - Atelectasis [Unknown]
  - Weight increased [Unknown]
  - Urinary tract infection [Unknown]
  - Hyperlipidaemia [Unknown]
  - Granuloma annulare [Unknown]
  - Varicose vein [Unknown]
  - Throat irritation [Unknown]
  - Colectomy [Unknown]
  - Meniscus injury [Recovering/Resolving]
  - Abdominal hernia [Unknown]
  - Rectal polyp [Unknown]
  - Osteoporosis [Unknown]
  - Postoperative fever [Unknown]

NARRATIVE: CASE EVENT DATE: 20000112
